FAERS Safety Report 4688696-0 (Version None)
Quarter: 2005Q2

REPORT INFORMATION
  Report Type: 
  Country: None (occurrence: None)
  Receive Date: 20050613
  Receipt Date: 20050601
  Transmission Date: 20051028
  Serious: Yes (Hospitalization, Other)
  Sender: FDA-Public Use
  Company Number: PHEH2005US06250

PATIENT
  Age: 45 Year
  Sex: Female

DRUGS (5)
  1. FAMVIR [Suspect]
     Indication: HERPES SIMPLEX
     Dosage: 500 MG, TID
     Route: 048
     Dates: start: 20041028, end: 20041106
  2. TEMODAR [Suspect]
     Indication: ASTROCYTOMA
     Dosage: 75 MG/M2, UNK
     Route: 048
     Dates: start: 20041008, end: 20041108
  3. TEMODAR [Suspect]
     Dosage: 75 MG/M2, UNK
     Route: 048
     Dates: start: 20041008, end: 20041108
  4. LAMICTAL [Suspect]
  5. KEPPRA [Suspect]

REACTIONS (25)
  - APLASTIC ANAEMIA [None]
  - BACTERIA STOOL IDENTIFIED [None]
  - BIOPSY BONE MARROW ABNORMAL [None]
  - BONE MARROW DEPRESSION [None]
  - CANDIDIASIS [None]
  - CHEST PAIN [None]
  - CLOSTRIDIAL INFECTION [None]
  - DEAFNESS NEUROSENSORY [None]
  - DIARRHOEA [None]
  - DRUG INTERACTION [None]
  - DYSPNOEA EXERTIONAL [None]
  - ECCHYMOSIS [None]
  - FEBRILE NEUTROPENIA [None]
  - HAEMOGLOBIN DECREASED [None]
  - HYPOACUSIS [None]
  - LEUKOPENIA [None]
  - MOUTH ULCERATION [None]
  - NAUSEA [None]
  - ORTHOSTATIC HYPOTENSION [None]
  - PANCYTOPENIA [None]
  - PLATELET COUNT DECREASED [None]
  - PYREXIA [None]
  - SINUSITIS [None]
  - THROMBOCYTOPENIA [None]
  - WHITE BLOOD CELL COUNT DECREASED [None]
